FAERS Safety Report 13741839 (Version 6)
Quarter: 2017Q3

REPORT INFORMATION
  Report Type: Report from Study
  Country: HU (occurrence: HU)
  Receive Date: 20170711
  Receipt Date: 20170922
  Transmission Date: 20171127
  Serious: Yes (Hospitalization)
  Sender: FDA-Public Use
  Company Number: HU-SA-2017SA045082

PATIENT
  Age: 40 Year
  Sex: Male
  Weight: 135 kg

DRUGS (7)
  1. NEBILET [Concomitant]
     Active Substance: NEBIVOLOL
     Route: 065
     Dates: start: 20151202
  2. ALPRASANT [Concomitant]
     Route: 065
  3. ARIPIPRAZOLE. [Concomitant]
     Active Substance: ARIPIPRAZOLE
     Route: 065
  4. RANACE [Concomitant]
     Route: 065
     Dates: start: 2009
  5. SAR231893 [Suspect]
     Active Substance: DUPILUMAB
     Indication: DERMATITIS ATOPIC
     Route: 058
     Dates: start: 201405
  6. SAR231893 [Suspect]
     Active Substance: DUPILUMAB
     Indication: DERMATITIS ATOPIC
     Route: 058
     Dates: start: 20140507, end: 20140507
  7. ZALASTA [Concomitant]
     Active Substance: OLANZAPINE
     Route: 065
     Dates: start: 20160602

REACTIONS (1)
  - Schizophrenia [Recovered/Resolved with Sequelae]

NARRATIVE: CASE EVENT DATE: 20170225
